FAERS Safety Report 17181910 (Version 1)
Quarter: 2019Q4

REPORT INFORMATION
  Report Type: Spontaneous
  Country: SE (occurrence: SE)
  Receive Date: 20191220
  Receipt Date: 20191220
  Transmission Date: 20200122
  Serious: Yes (Hospitalization)
  Sender: FDA-Public Use
  Company Number: SE-TEVA-2019-SE-1154061

PATIENT
  Sex: Male

DRUGS (5)
  1. FLUOXETINE [Suspect]
     Active Substance: FLUOXETINE HYDROCHLORIDE
     Dosage: 200 MG
     Route: 048
     Dates: start: 20181112, end: 20181112
  2. MELATONIN [Suspect]
     Active Substance: MELATONIN
     Dosage: 200 MG
     Route: 048
     Dates: start: 20181112, end: 20181112
  3. MIRTAZAPINE. [Suspect]
     Active Substance: MIRTAZAPINE
     Dosage: 300 MG
     Route: 048
     Dates: start: 20181112, end: 20181112
  4. SERTRALINE [Suspect]
     Active Substance: SERTRALINE HYDROCHLORIDE
     Dosage: 600 MG
     Route: 048
     Dates: start: 20181112, end: 20181112
  5. PROPAVAN [Suspect]
     Active Substance: PROPIOMAZINE
     Dosage: 500 MG
     Route: 048
     Dates: start: 20181112, end: 20181112

REACTIONS (5)
  - Dizziness [Unknown]
  - Intentional self-injury [Unknown]
  - Balance disorder [Unknown]
  - Respiratory alkalosis [Unknown]
  - Intentional overdose [Unknown]

NARRATIVE: CASE EVENT DATE: 20181112
